FAERS Safety Report 25837885 (Version 1)
Quarter: 2025Q3

REPORT INFORMATION
  Report Type: Report from Study
  Country: EU (occurrence: EU)
  Receive Date: 20250923
  Receipt Date: 20250923
  Transmission Date: 20251021
  Serious: Yes (Other)
  Sender: MYLAN
  Company Number: EU-JNJFOC-20250901866

PATIENT
  Age: 59 Year
  Sex: Female

DRUGS (5)
  1. DEXAMETHASONE [Suspect]
     Active Substance: DEXAMETHASONE
     Indication: Plasma cell myeloma
     Dosage: 20 MILLIGRAM, 4XW (0.25 WEEK,20 MG/DOSE 4 DOSES/WEEK 2 WEEKS/CYCLE)
     Dates: end: 20211126
  2. BORTEZOMIB [Suspect]
     Active Substance: BORTEZOMIB
     Indication: Plasma cell myeloma
     Dosage: UNK, BIWEEKLY  (0.5WEEK, 2 DOSES/WEEK 2 WEEKS/CYCLE)
     Dates: end: 20211126
  3. LENALIDOMIDE [Suspect]
     Active Substance: LENALIDOMIDE
     Indication: Plasma cell myeloma
     Dosage: 25 MILLIGRAM, QD (0.14 WEEK, 25 MG/DOSE 7 DOSES/WEEK 2 WEEKS/CYCLE)
     Dates: end: 20211126
  4. LENALIDOMIDE [Suspect]
     Active Substance: LENALIDOMIDE
     Dosage: 10 MILLIGRAM, 3XW (0.33WEEK,MAINTENANCE: LENALIDOMIDE 10 MG/DOSE 3 DOSES/WEEK 3 WEEKS/CYCLE)
     Dates: end: 20211126
  5. MELPHALAN [Suspect]
     Active Substance: MELPHALAN
     Indication: Plasma cell myeloma
     Dosage: 200 MILLIGRAM/SQ. METER, QW (200 MG/M2/DOSE 1 DOSE/WEEK 1 WEEK/CYCLE)
     Dates: end: 20211126

REACTIONS (2)
  - Neutropenia [Unknown]
  - Intentional product use issue [Unknown]

NARRATIVE: CASE EVENT DATE: 20190228
